FAERS Safety Report 6110720-9 (Version None)
Quarter: 2009Q1

REPORT INFORMATION
  Report Type: 
  Country: None (occurrence: None)
  Receive Date: 20090309
  Receipt Date: 20090224
  Transmission Date: 20090719
  Serious: Yes (Death)
  Sender: FDA-Public Use
  Company Number: WAES 0902USA04289

PATIENT
  Age: 50 Year
  Sex: Male

DRUGS (3)
  1. DECADRON [Suspect]
     Dosage: PO
     Route: 048
  2. GLOBULIN [Concomitant]
  3. IMMUNE [Concomitant]

REACTIONS (15)
  - ABDOMINAL PAIN [None]
  - ACUTE GRAFT VERSUS HOST DISEASE IN INTESTINE [None]
  - CEREBRAL HAEMORRHAGE [None]
  - CHOLECYSTITIS [None]
  - CONVULSION [None]
  - DEMYELINATION [None]
  - DIARRHOEA [None]
  - EOSINOPHILIA [None]
  - MUCOSAL INFLAMMATION [None]
  - NAUSEA [None]
  - NERVOUS SYSTEM DISORDER [None]
  - NO THERAPEUTIC RESPONSE [None]
  - RASH ERYTHEMATOUS [None]
  - SKIN EXFOLIATION [None]
  - VOMITING [None]
